FAERS Safety Report 12434688 (Version 2)
Quarter: 2016Q2

REPORT INFORMATION
  Report Type: Spontaneous
  Country: JP (occurrence: JP)
  Receive Date: 20160603
  Receipt Date: 20160614
  Transmission Date: 20160815
  Serious: Yes (Other)
  Sender: FDA-Public Use
  Company Number: JP-ABBVIE-16P-087-1640976-00

PATIENT
  Age: 38 Year
  Sex: Female

DRUGS (2)
  1. KALETRA [Suspect]
     Active Substance: LOPINAVIR\RITONAVIR
     Indication: HIV ANTIBODY POSITIVE
     Route: 065
  2. LAMIVUDINE AND ZIDOVUDINE [Concomitant]
     Active Substance: LAMIVUDINE\ZIDOVUDINE
     Indication: HIV ANTIBODY POSITIVE

REACTIONS (3)
  - Preterm premature rupture of membranes [Unknown]
  - Caesarean section [Unknown]
  - Exposure during pregnancy [Unknown]
